FAERS Safety Report 15082279 (Version 1)
Quarter: 2018Q2

REPORT INFORMATION
  Report Type: Spontaneous
  Country: BR (occurrence: BR)
  Receive Date: 20180628
  Receipt Date: 20180628
  Transmission Date: 20180711
  Serious: Yes (Hospitalization)
  Sender: FDA-Public Use
  Company Number: PHHY2018BR031356

PATIENT
  Sex: Female
  Weight: 50 kg

DRUGS (5)
  1. GALVUS [Suspect]
     Active Substance: VILDAGLIPTIN
     Indication: DIABETES MELLITUS
     Route: 065
  2. METFORMIN [Suspect]
     Active Substance: METFORMIN HYDROCHLORIDE
     Indication: DIABETES MELLITUS
     Route: 065
  3. GALVUS MET [Suspect]
     Active Substance: METFORMIN HYDROCHLORIDE\VILDAGLIPTIN
     Dosage: 1 DF, QD
     Route: 048
  4. GALVUS MET [Suspect]
     Active Substance: METFORMIN HYDROCHLORIDE\VILDAGLIPTIN
     Indication: DIABETES MELLITUS
     Dosage: 0.5 DF, UNK (SPLIT IT IN HALF)
     Route: 048
  5. AZUKON [Suspect]
     Active Substance: GLICLAZIDE
     Indication: DIABETES MELLITUS
     Route: 065

REACTIONS (9)
  - Erythema [Unknown]
  - Alopecia [Recovering/Resolving]
  - Pruritus [Unknown]
  - Wrong technique in product usage process [Unknown]
  - Headache [Unknown]
  - Lip swelling [Recovering/Resolving]
  - Spinal cord injury [Unknown]
  - Gastrointestinal disorder [Unknown]
  - Scratch [Unknown]
